FAERS Safety Report 25867661 (Version 1)
Quarter: 2025Q4

REPORT INFORMATION
  Report Type: Report from Study
  Country: US (occurrence: US)
  Receive Date: 20251001
  Receipt Date: 20251001
  Transmission Date: 20260118
  Serious: Yes (Other)
  Sender: ABBVIE
  Company Number: US-ABBVIE-6481859

PATIENT
  Age: 56 Year
  Sex: Male

DRUGS (1)
  1. CREON [Suspect]
     Active Substance: PANCRELIPASE AMYLASE\PANCRELIPASE LIPASE\PANCRELIPASE PROTEASE
     Indication: Pancreatic failure
     Route: 048
     Dates: start: 202308

REACTIONS (5)
  - Carpal tunnel syndrome [Unknown]
  - Back pain [Unknown]
  - Diarrhoea [Unknown]
  - Diabetes mellitus [Unknown]
  - Surgery [Unknown]

NARRATIVE: CASE EVENT DATE: 20240101
